FAERS Safety Report 11371823 (Version 1)
Quarter: 2015Q3

REPORT INFORMATION
  Report Type: Spontaneous
  Country: US (occurrence: US)
  Receive Date: 20150812
  Receipt Date: 20150812
  Transmission Date: 20151125
  Serious: Yes (Hospitalization, Other)
  Sender: FDA-Public Use
  Company Number: US-ABBVIE-15P-163-1440288-00

PATIENT
  Age: 37 Year
  Sex: Female

DRUGS (4)
  1. ARANESP [Concomitant]
     Active Substance: DARBEPOETIN ALFA
     Indication: PRODUCT USED FOR UNKNOWN INDICATION
  2. ACTIGALL [Concomitant]
     Active Substance: URSODIOL
     Indication: PRODUCT USED FOR UNKNOWN INDICATION
  3. INSULIN [Concomitant]
     Active Substance: INSULIN NOS
     Indication: DIABETES MELLITUS
  4. CREON [Suspect]
     Active Substance: PANCRELIPASE AMYLASE\PANCRELIPASE LIPASE\PANCRELIPASE PROTEASE
     Indication: CYSTIC FIBROSIS
     Route: 065

REACTIONS (14)
  - Intestinal obstruction [Unknown]
  - Renal function test abnormal [Recovering/Resolving]
  - Abdominal pain upper [Unknown]
  - Blood glucose increased [Unknown]
  - Weight decreased [Unknown]
  - Liver function test abnormal [Unknown]
  - Pseudomonas infection [Unknown]
  - Gastrointestinal disorder [Unknown]
  - Hepatic failure [Unknown]
  - Feeling abnormal [Unknown]
  - Cystic fibrosis [Unknown]
  - Ascites [Unknown]
  - Fatigue [Unknown]
  - Skin discolouration [Unknown]
